FAERS Safety Report 23637959 (Version 1)
Quarter: 2024Q1

REPORT INFORMATION
  Report Type: Report from Study
  Country: US (occurrence: US)
  Receive Date: 20240315
  Receipt Date: 20240315
  Transmission Date: 20240410
  Serious: Yes (Hospitalization)
  Sender: FDA-Public Use
  Company Number: US-BIOGEN-2024BI01254775

PATIENT
  Age: 78 Year
  Sex: Male

DRUGS (2)
  1. VUMERITY [Suspect]
     Active Substance: DIROXIMEL FUMARATE
     Indication: Multiple sclerosis
     Dosage: ORIGINALLY INITIATED THERAPY ON 1/12, MOVED TO FULL DOSE ON 1/19, REMAINED ON FULL DOSE UNTIL 3/2...
     Route: 050
     Dates: start: 20230110
  2. VUMERITY [Suspect]
     Active Substance: DIROXIMEL FUMARATE
     Dosage: 1 PER 1 DAY
     Route: 050

REACTIONS (1)
  - Gastroenteritis [Not Recovered/Not Resolved]

NARRATIVE: CASE EVENT DATE: 20240302
